FAERS Safety Report 5650459-7 (Version None)
Quarter: 2008Q1

REPORT INFORMATION
  Report Type: 
  Country: None (occurrence: None)
  Receive Date: 20080304
  Receipt Date: 20080304
  Transmission Date: 20080703
  Serious: Yes (Other)
  Sender: FDA-Public Use
  Company Number: None

PATIENT
  Age: 48 Year
  Sex: Female
  Weight: 95.2554 kg

DRUGS (2)
  1. PROVENTIL-HFA [Suspect]
     Indication: ASTHMA
     Dosage: 2 PUFFS  4-6 HOURS  PO
     Route: 048
     Dates: start: 20071210, end: 20071210
  2. PROVENTIL-HFA [Suspect]
     Indication: DYSPNOEA
     Dosage: 2 PUFFS  4-6 HOURS  PO
     Route: 048
     Dates: start: 20071210, end: 20071210

REACTIONS (1)
  - URTICARIA [None]
